FAERS Safety Report 16754962 (Version 1)
Quarter: 2019Q3

REPORT INFORMATION
  Report Type: Spontaneous
  Country: GB (occurrence: GB)
  Receive Date: 20190829
  Receipt Date: 20190829
  Transmission Date: 20191005
  Serious: Yes (Hospitalization, Disabling)
  Sender: FDA-Public Use
  Company Number: GB-ROCHE-2362862

PATIENT
  Sex: Female

DRUGS (1)
  1. HERCEPTIN [Suspect]
     Active Substance: TRASTUZUMAB
     Indication: PRODUCT USED FOR UNKNOWN INDICATION
     Dosage: LAST DOSE GIVEN ON 02/JUL/2019.
     Route: 065
     Dates: start: 201901

REACTIONS (6)
  - Blood glucose increased [Unknown]
  - Leg amputation [Unknown]
  - Decubitus ulcer [Unknown]
  - Confusional state [Unknown]
  - Diarrhoea [Unknown]
  - Diabetic coma [Unknown]
